FAERS Safety Report 8511732-8 (Version None)
Quarter: 2012Q3

REPORT INFORMATION
  Report Type: 
  Country: None (occurrence: None)
  Receive Date: 20120710
  Receipt Date: 20120710
  Transmission Date: 20120928
  Serious: Yes (Hospitalization)
  Sender: FDA-Public Use
  Company Number: None

PATIENT
  Sex: Male
  Weight: 61.2 kg

DRUGS (1)
  1. INTEGRILIN [Suspect]
     Indication: ACUTE MYOCARDIAL INFARCTION
     Dosage: 0.05 MCG/KG/MIN CONTINUOUS IV DRIP
     Route: 041
     Dates: start: 20120701, end: 20120702

REACTIONS (1)
  - THROMBOCYTOPENIA [None]
